FAERS Safety Report 26139591 (Version 1)
Quarter: 2025Q4

REPORT INFORMATION
  Report Type: Spontaneous
  Country: US (occurrence: US)
  Receive Date: 20251210
  Receipt Date: 20251210
  Transmission Date: 20260117
  Serious: No
  Sender: PHARMACOSMOS A/S
  Company Number: US-NEBO-714900

PATIENT
  Age: 66 Year
  Sex: Female
  Weight: 47 kg

DRUGS (1)
  1. MONOFERRIC [Suspect]
     Active Substance: FERRIC DERISOMALTOSE
     Indication: Product used for unknown indication
     Dates: start: 20251121, end: 20251121

REACTIONS (2)
  - Dyspnoea [Recovered/Resolved]
  - Blood pressure decreased [Recovered/Resolved]

NARRATIVE: CASE EVENT DATE: 20251121
